FAERS Safety Report 5847189-5 (Version None)
Quarter: 2008Q3

REPORT INFORMATION
  Report Type: 
  Country: None (occurrence: None)
  Receive Date: 20080815
  Receipt Date: 20080812
  Transmission Date: 20090109
  Serious: Yes (Hospitalization)
  Sender: FDA-Public Use
  Company Number: JP-ASTRAZENECA-2008AP06252

PATIENT
  Sex: Male
  Weight: 65 kg

DRUGS (3)
  1. OMEPRAZOLE [Suspect]
     Indication: REFLUX OESOPHAGITIS
     Route: 048
     Dates: start: 20080412, end: 20080506
  2. MAGNESIUM OXIDE [Concomitant]
     Route: 048
     Dates: start: 20071016
  3. HARNAL D [Concomitant]
     Route: 048
     Dates: start: 20080408

REACTIONS (1)
  - CARCINOID TUMOUR OF THE SMALL BOWEL [None]
